FAERS Safety Report 5994172-5 (Version None)
Quarter: 2008Q4

REPORT INFORMATION
  Report Type: 
  Country: None (occurrence: None)
  Receive Date: 20081212
  Receipt Date: 20081118
  Transmission Date: 20090506
  Serious: Yes (Hospitalization)
  Sender: FDA-Public Use
  Company Number: US-ABBOTT-08P-163-0473895-00

PATIENT
  Sex: Male
  Weight: 83.99 kg

DRUGS (13)
  1. HUMIRA [Suspect]
     Indication: CROHN'S DISEASE
     Dosage: INITIAL DOSE
     Route: 058
     Dates: start: 20070901
  2. HUMIRA [Suspect]
     Dosage: ONCE
     Route: 058
  3. HUMIRA [Suspect]
     Route: 058
     Dates: end: 20080604
  4. HUMIRA [Suspect]
     Route: 058
  5. PREDNISONE TAB [Concomitant]
     Indication: CROHN'S DISEASE
     Dosage: STARTED AT 40MG/DAY, DECREASED TO CURRENT DOSE 5 MG DAILY
     Route: 048
     Dates: start: 20080501
  6. PREDNISONE TAB [Concomitant]
     Dosage: DOSE DECREASED EVERY OTHER WK TO DOSE OF 5 MG A DAY
     Route: 048
  7. PREDNISONE TAB [Concomitant]
     Dates: start: 19910101, end: 20070901
  8. CERTOLIZUMAB PEGOL [Concomitant]
     Indication: CROHN'S DISEASE
     Route: 058
     Dates: start: 20080701
  9. BUDESONIDE [Concomitant]
     Indication: CROHN'S DISEASE
  10. MESALAMINE [Concomitant]
     Indication: CROHN'S DISEASE
  11. BLOOD PRESSURE PILL [Concomitant]
     Indication: HYPERTENSION
  12. WATER PILL [Concomitant]
     Indication: DRUG USE FOR UNKNOWN INDICATION
  13. RISEDRONATE SODIUM [Concomitant]
     Indication: DRUG USE FOR UNKNOWN INDICATION

REACTIONS (6)
  - ABDOMINAL PAIN UPPER [None]
  - CROHN'S DISEASE [None]
  - DYSPNOEA [None]
  - NAUSEA [None]
  - SMALL INTESTINAL OBSTRUCTION [None]
  - VOMITING [None]
